FAERS Safety Report 20546471 (Version 1)
Quarter: 2022Q1

REPORT INFORMATION
  Report Type: Report from Study
  Country: GB (occurrence: GB)
  Receive Date: 20220303
  Receipt Date: 20220303
  Transmission Date: 20220423
  Serious: Yes (Hospitalization)
  Sender: FDA-Public Use
  Company Number: GB-EVEREST MEDICINES II (HK) LIMITED-2021IMMU000077

PATIENT
  Age: 45 Year
  Sex: Female
  Weight: 88.1 kg

DRUGS (10)
  1. SACITUZUMAB GOVITECAN [Suspect]
     Active Substance: SACITUZUMAB GOVITECAN
     Indication: Breast cancer metastatic
     Dosage: 10 MG/KG (868 MG) DAYS 1 AND 8 OF 21-DAYS CYCLE
     Route: 042
     Dates: start: 20201006, end: 20201006
  2. SACITUZUMAB GOVITECAN [Suspect]
     Active Substance: SACITUZUMAB GOVITECAN
     Dosage: 10 MG/KG (908 MG) DAYS 1 AND 8 OF 21-DAYS CYCLE
     Route: 042
     Dates: start: 20210119, end: 20210119
  3. SACITUZUMAB GOVITECAN [Suspect]
     Active Substance: SACITUZUMAB GOVITECAN
     Dosage: 10 MG/KG (880 MG) DAYS 1 AND 8 OF 21-DAYS CYCLE
     Route: 042
     Dates: start: 20210217, end: 20210217
  4. ONDANSETRON [Concomitant]
     Active Substance: ONDANSETRON
     Indication: Illness
     Dosage: UNK UNK, PRN
     Route: 048
     Dates: start: 20201010
  5. DEXAMETHASONE [Concomitant]
     Active Substance: DEXAMETHASONE
     Indication: Premedication
     Dosage: UNK UNK, PRN, ROUTINE WITH PREMED
     Route: 042
     Dates: start: 20201013
  6. METOCLOPRAMIDE [Concomitant]
     Active Substance: METOCLOPRAMIDE
     Indication: Illness
     Dosage: 10 MG, PRN
     Route: 048
     Dates: start: 20201006
  7. Gelclair [Concomitant]
     Indication: Mouth ulceration
     Dosage: 1 DF (SACHET), PRN
     Route: 061
     Dates: start: 20201126
  8. DOMPERIDONE [Concomitant]
     Active Substance: DOMPERIDONE
     Indication: Prophylaxis of nausea and vomiting
     Dosage: 10 MG, PRN
     Route: 048
     Dates: start: 20201209
  9. LOPERAMIDE [Concomitant]
     Active Substance: LOPERAMIDE
     Indication: Prophylaxis against diarrhoea
     Dosage: 2 MG, PRN
     Route: 048
     Dates: start: 20201209
  10. LANSOPRAZOLE [Concomitant]
     Active Substance: LANSOPRAZOLE
     Indication: Dyspepsia
     Dosage: 30 MG, PRN
     Route: 048
     Dates: start: 20201107

REACTIONS (1)
  - Pneumocystis jirovecii pneumonia [Recovered/Resolved]

NARRATIVE: CASE EVENT DATE: 20210201
